FAERS Safety Report 17364158 (Version 2)
Quarter: 2020Q1

REPORT INFORMATION
  Report Type: Spontaneous
  Country: PT (occurrence: PT)
  Receive Date: 20200204
  Receipt Date: 20200212
  Transmission Date: 20200409
  Serious: Yes (Hospitalization, Other)
  Sender: FDA-Public Use
  Company Number: PT-AUROBINDO-AUR-APL-2020-005008

PATIENT
  Age: 72 Year
  Sex: Male

DRUGS (17)
  1. RISEDRONATE [Suspect]
     Active Substance: RISEDRONATE SODIUM
     Indication: HENOCH-SCHONLEIN PURPURA
     Dosage: 35 MILLIGRAM, EVERY WEEK
     Route: 065
  2. PREDNISOLONE. [Suspect]
     Active Substance: PREDNISOLONE
     Dosage: 12.5 MILLIGRAM, ONCE A DAY
     Route: 065
  3. INFLIXIMAB [Suspect]
     Active Substance: INFLIXIMAB
     Indication: INFLAMMATORY BOWEL DISEASE
     Dosage: UNK
     Route: 065
  4. AZATHIOPRINE. [Suspect]
     Active Substance: AZATHIOPRINE
     Indication: HENOCH-SCHONLEIN PURPURA
     Dosage: UNK
     Route: 065
  5. METHOTREXATE. [Suspect]
     Active Substance: METHOTREXATE
     Indication: HENOCH-SCHONLEIN PURPURA
     Dosage: 10 MILLIGRAM, EVERY WEEK (STABILIZATION OF THE DISEASE FOR 3 MONTHS)
     Route: 065
  6. PREDNISOLONE. [Suspect]
     Active Substance: PREDNISOLONE
     Indication: HENOCH-SCHONLEIN PURPURA
     Dosage: 7.5 MILLIGRAM, ONCE A DAY
     Route: 065
  7. PREDNISOLONE. [Suspect]
     Active Substance: PREDNISOLONE
     Dosage: 20 MILLIGRAM, ONCE A DAY
     Route: 065
  8. MYCOPHENOLATE MOFETIL. [Suspect]
     Active Substance: MYCOPHENOLATE MOFETIL
     Indication: HENOCH-SCHONLEIN PURPURA
     Dosage: 2500 MILLIGRAM, ONCE A DAY
     Route: 065
  9. MYCOPHENOLATE MOFETIL. [Suspect]
     Active Substance: MYCOPHENOLATE MOFETIL
     Dosage: 1500 MILLIGRAM, ONCE A DAY
     Route: 065
  10. RITUXIMAB. [Suspect]
     Active Substance: RITUXIMAB
     Indication: HENOCH-SCHONLEIN PURPURA
     Dosage: UNK
     Route: 065
  11. PREDNISOLONE. [Suspect]
     Active Substance: PREDNISOLONE
     Indication: INFLAMMATORY BOWEL DISEASE
     Dosage: 40 MILLIGRAM, ONCE A DAY (20-40 MG QD)
     Route: 065
  12. CYCLOPHOSPHAMIDE. [Concomitant]
     Active Substance: CYCLOPHOSPHAMIDE
     Indication: HENOCH-SCHONLEIN PURPURA
     Dosage: 1 GRAM, MONTHLY
     Route: 065
  13. METHYLPREDNISOLONE. [Concomitant]
     Active Substance: METHYLPREDNISOLONE
     Indication: HENOCH-SCHONLEIN PURPURA
     Dosage: UNK
     Route: 042
  14. LANSOPRAZOLE. [Suspect]
     Active Substance: LANSOPRAZOLE
     Indication: HENOCH-SCHONLEIN PURPURA
     Dosage: 20 MILLIGRAM, ONCE A DAY
     Route: 065
  15. CALCIUM CARBONATE/VITAMINA D3 [Suspect]
     Active Substance: CALCIUM CARBONATE\CHOLECALCIFEROL
     Indication: HENOCH-SCHONLEIN PURPURA
     Dosage: 1 DOSAGE FORM, ONCE A DAY
     Route: 065
  16. PREDNISOLONE. [Suspect]
     Active Substance: PREDNISOLONE
     Dosage: 5 MILLIGRAM, ONCE A DAY
     Route: 065
  17. AZATHIOPRINE. [Suspect]
     Active Substance: AZATHIOPRINE
     Indication: INFLAMMATORY BOWEL DISEASE
     Dosage: 150 MILLIGRAM, ONCE A DAY
     Route: 065

REACTIONS (17)
  - Condition aggravated [Unknown]
  - Abdominal pain [Unknown]
  - Chronic kidney disease [Recovering/Resolving]
  - Pyelonephritis acute [Unknown]
  - Epididymitis [Unknown]
  - Cystitis escherichia [Unknown]
  - Drug ineffective [Unknown]
  - Pneumonia [Unknown]
  - Purpura [Unknown]
  - Rectal haemorrhage [Unknown]
  - Henoch-Schonlein purpura [Unknown]
  - Haematochezia [Unknown]
  - Proteinuria [Recovering/Resolving]
  - Arthritis [Recovering/Resolving]
  - Nausea [Unknown]
  - Product use in unapproved indication [Unknown]
  - Hypersensitivity vasculitis [Unknown]
